FAERS Safety Report 6139042-7 (Version None)
Quarter: 2009Q1

REPORT INFORMATION
  Report Type: 
  Country: None (occurrence: None)
  Receive Date: 20090331
  Receipt Date: 20090327
  Transmission Date: 20090719
  Serious: Yes (Hospitalization)
  Sender: FDA-Public Use
  Company Number: GB-AMGEN-UK340576

PATIENT
  Sex: Female
  Weight: 74 kg

DRUGS (10)
  1. KINERET [Suspect]
     Indication: RHEUMATOID ARTHRITIS
     Route: 065
     Dates: start: 20021015, end: 20030315
  2. BENDROFLUAZIDE [Concomitant]
     Route: 065
  3. CEPHALEXIN [Concomitant]
     Route: 065
  4. ACETAMINOPHEN WITH PROPOXYPHENE HCL TAB [Concomitant]
     Route: 065
  5. WARFARIN SODIUM [Concomitant]
     Route: 065
  6. EVISTA [Concomitant]
     Route: 065
  7. LANSOPRAZOLE [Concomitant]
     Route: 065
  8. LOSARTAN POTASSIUM [Concomitant]
     Route: 065
  9. NAPROXEN [Concomitant]
     Route: 065
  10. METHOTREXATE [Concomitant]
     Route: 065

REACTIONS (1)
  - THYROID CANCER [None]
